FAERS Safety Report 7024088-7 (Version None)
Quarter: 2010Q3

REPORT INFORMATION
  Report Type: 
  Country: None (occurrence: None)
  Receive Date: 20100929
  Receipt Date: 20100915
  Transmission Date: 20110219
  Serious: Yes (Hospitalization)
  Sender: FDA-Public Use
  Company Number: US-003711

PATIENT
  Sex: Female
  Weight: 72.5755 kg

DRUGS (2)
  1. BRAVELLE [Suspect]
     Indication: INFERTILITY
     Dosage: 225 IU QD 2 DAYS, INJECTION SUBCUTANEOUS
     Route: 058
     Dates: start: 20090101
  2. PRENATAL VITAMINS /01549301/ [Concomitant]

REACTIONS (2)
  - HIATUS HERNIA [None]
  - PAIN [None]
